FAERS Safety Report 12080263 (Version 3)
Quarter: 2016Q1

REPORT INFORMATION
  Report Type: Spontaneous
  Country: US (occurrence: US)
  Receive Date: 20160216
  Receipt Date: 20160314
  Transmission Date: 20160526
  Serious: Yes (Death, Life-Threatening)
  Sender: FDA-Public Use
  Company Number: US-009507513-1602USA007155

PATIENT
  Age: 49 Year
  Sex: Female
  Weight: 73.92 kg

DRUGS (6)
  1. BELSOMRA [Suspect]
     Active Substance: SUVOREXANT
     Dosage: 10 MG, UNK
     Route: 048
     Dates: start: 20160105, end: 201601
  2. EFFEXOR [Concomitant]
     Active Substance: VENLAFAXINE HYDROCHLORIDE
     Indication: AFFECTIVE DISORDER
     Dosage: 225 MG, QD
     Route: 048
     Dates: start: 20140430
  3. OXYCODONE [Suspect]
     Active Substance: OXYCODONE
     Indication: PAIN
  4. BELSOMRA [Suspect]
     Active Substance: SUVOREXANT
     Indication: INSOMNIA
     Dosage: 15 MG, UNK
     Route: 048
     Dates: start: 201601
  5. LAMICTAL [Concomitant]
     Active Substance: LAMOTRIGINE
     Indication: AFFECTIVE DISORDER
     Dosage: 150 MG, ONCE A DAY
     Route: 048
     Dates: start: 20140603
  6. LEVOTHYROXINE SODIUM. [Concomitant]
     Active Substance: LEVOTHYROXINE SODIUM

REACTIONS (3)
  - Gastrointestinal haemorrhage [Fatal]
  - Epistaxis [Unknown]
  - Varices oesophageal [Unknown]

NARRATIVE: CASE EVENT DATE: 201601
